FAERS Safety Report 6765122-9 (Version None)
Quarter: 2010Q2

REPORT INFORMATION
  Report Type: 
  Country: None (occurrence: None)
  Receive Date: 20100609
  Receipt Date: 20100609
  Transmission Date: 20101027
  Serious: No
  Sender: FDA-Public Use
  Company Number: None

PATIENT
  Age: 35 Year
  Sex: Female
  Weight: 68.0396 kg

DRUGS (1)
  1. WELLBUTRIN XL [Suspect]
     Dosage: 450 MG DAILY PO
     Route: 048
     Dates: start: 20090101, end: 20090401

REACTIONS (2)
  - DEPRESSION [None]
  - PRODUCT SUBSTITUTION ISSUE [None]
